FAERS Safety Report 7883206-9 (Version None)
Quarter: 2011Q4

REPORT INFORMATION
  Report Type: 
  Country: None (occurrence: None)
  Receive Date: 20111101
  Receipt Date: 20111101
  Transmission Date: 20120403
  Serious: Yes (Life-Threatening, Hospitalization, Disabling)
  Sender: FDA-Public Use
  Company Number: None

PATIENT
  Age: 94 Year
  Sex: Male
  Weight: 90 kg

DRUGS (1)
  1. WARFARIN SODIUM [Suspect]
     Indication: SUBDURAL HAEMORRHAGE
     Dosage: 2.5 MG EVERY DAY PO
     Route: 048
     Dates: start: 20100324, end: 20111027

REACTIONS (5)
  - DYSARTHRIA [None]
  - APHASIA [None]
  - MUSCULAR WEAKNESS [None]
  - SUBDURAL HAEMORRHAGE [None]
  - MOTOR DYSFUNCTION [None]
